FAERS Safety Report 21950081 (Version 1)
Quarter: 2023Q1

REPORT INFORMATION
  Report Type: Report from Study
  Country: US (occurrence: US)
  Receive Date: 20230203
  Receipt Date: 20230203
  Transmission Date: 20230417
  Serious: Yes (Other)
  Sender: FDA-Public Use
  Company Number: US-002147023-NVSC2023US020497

PATIENT
  Sex: Male

DRUGS (20)
  1. METHOTREXATE [Suspect]
     Active Substance: METHOTREXATE
     Indication: Psoriatic arthropathy
     Dosage: UNK
     Route: 065
  2. METHOTREXATE [Suspect]
     Active Substance: METHOTREXATE
     Indication: Psoriasis
  3. IBUPROFEN [Suspect]
     Active Substance: IBUPROFEN
     Indication: Psoriasis
     Dosage: 600 MG, QD
     Route: 048
  4. IBUPROFEN [Suspect]
     Active Substance: IBUPROFEN
     Indication: Psoriatic arthropathy
  5. BETAMETHASONE DIPROPIONATE [Suspect]
     Active Substance: BETAMETHASONE DIPROPIONATE
     Indication: Psoriasis
     Dosage: 0.05 %, BID
     Route: 061
  6. BETAMETHASONE DIPROPIONATE [Suspect]
     Active Substance: BETAMETHASONE DIPROPIONATE
     Indication: Psoriatic arthropathy
  7. ATORVASTATIN [Suspect]
     Active Substance: ATORVASTATIN
     Indication: Product used for unknown indication
     Dosage: 80 MG, QD
     Route: 048
  8. AZELASTINE [Suspect]
     Active Substance: AZELASTINE
     Indication: Product used for unknown indication
     Dosage: 1 DRP, BID IN BOTH EYES
     Route: 047
  9. HYDROXYZINE [Suspect]
     Active Substance: HYDROXYZINE HYDROCHLORIDE
     Indication: Anxiety
     Dosage: 25 MG, TID
     Route: 048
  10. LOSARTAN [Suspect]
     Active Substance: LOSARTAN
     Indication: Product used for unknown indication
     Dosage: 12.5 MG, QD
     Route: 048
  11. DIPROLENE [Suspect]
     Active Substance: BETAMETHASONE DIPROPIONATE
     Indication: Psoriasis
     Dosage: UNK
     Route: 061
  12. DIPROLENE [Suspect]
     Active Substance: BETAMETHASONE DIPROPIONATE
     Indication: Psoriatic arthropathy
  13. ACYCLOVIR [Suspect]
     Active Substance: ACYCLOVIR
     Indication: Product used for unknown indication
     Dosage: 800 MG, BID
     Route: 048
  14. ALBUTEROL SULFATE [Suspect]
     Active Substance: ALBUTEROL SULFATE
     Indication: Product used for unknown indication
     Dosage: 2.5 MG (TAKE 2.5MG TOTAL BY NEBULIZATION EVERY 4 HOURS AS NEEDED FOR WHEEZING)
  15. CITALOPRAM [Suspect]
     Active Substance: CITALOPRAM HYDROBROMIDE
     Indication: Product used for unknown indication
     Dosage: 10 MG, QD
     Route: 048
  16. ESOMEPRAZOLE [Suspect]
     Active Substance: ESOMEPRAZOLE
     Indication: Product used for unknown indication
     Dosage: 20 MG, QD
     Route: 048
  17. FLUTICASONE PROPIONATE [Suspect]
     Active Substance: FLUTICASONE PROPIONATE
     Indication: Product used for unknown indication
     Dosage: UNK
     Route: 045
  18. FUROSEMIDE [Suspect]
     Active Substance: FUROSEMIDE
     Indication: Product used for unknown indication
     Dosage: 20 MG, QD
     Route: 048
  19. POTASSIUM CHLORIDE [Suspect]
     Active Substance: POTASSIUM CHLORIDE
     Indication: Product used for unknown indication
     Dosage: UNK, BID
     Route: 048
  20. SILDENAFIL [Suspect]
     Active Substance: SILDENAFIL
     Indication: Product used for unknown indication
     Dosage: 100 MG, PRN (AS NEEDED)
     Route: 048

REACTIONS (4)
  - Psoriatic arthropathy [Not Recovered/Not Resolved]
  - Condition aggravated [Unknown]
  - Psoriasis [Not Recovered/Not Resolved]
  - Drug ineffective [Unknown]
